FAERS Safety Report 11208125 (Version 6)
Quarter: 2015Q3

REPORT INFORMATION
  Report Type: Spontaneous
  Country: US (occurrence: US)
  Receive Date: 20150622
  Receipt Date: 20150918
  Transmission Date: 20151125
  Serious: Yes (Death, Hospitalization, Other)
  Sender: FDA-Public Use
  Company Number: US-CELGENE-USA-2015062201

PATIENT
  Age: 66 Year
  Sex: Male
  Weight: 97.48 kg

DRUGS (64)
  1. REVLIMID [Suspect]
     Active Substance: LENALIDOMIDE
     Route: 048
     Dates: start: 20140317, end: 20140406
  2. REVLIMID [Suspect]
     Active Substance: LENALIDOMIDE
     Route: 048
     Dates: start: 20140804, end: 20140812
  3. SAR650984 [Suspect]
     Active Substance: INVESTIGATIONAL PRODUCT
     Route: 065
     Dates: start: 20150511, end: 20150511
  4. SAR650984 [Suspect]
     Active Substance: INVESTIGATIONAL PRODUCT
     Route: 065
     Dates: start: 20150526, end: 20150526
  5. SAR650984 [Suspect]
     Active Substance: INVESTIGATIONAL PRODUCT
     Route: 065
     Dates: start: 20131028
  6. DEXAMETHASONE. [Suspect]
     Active Substance: DEXAMETHASONE
     Indication: PLASMA CELL MYELOMA
     Route: 065
     Dates: start: 20131028
  7. PERCOCET [Concomitant]
     Active Substance: ACETAMINOPHEN\OXYCODONE HYDROCHLORIDE
     Indication: PROPHYLAXIS
     Route: 065
     Dates: start: 20130527
  8. PEPCID [Concomitant]
     Active Substance: FAMOTIDINE
     Route: 065
     Dates: start: 20141013, end: 20150302
  9. CLARITHROMYCIN. [Concomitant]
     Active Substance: CLARITHROMYCIN
     Indication: PRODUCT USED FOR UNKNOWN INDICATION
     Route: 065
     Dates: start: 20140902, end: 20140929
  10. OMEPRAZOLE. [Concomitant]
     Active Substance: OMEPRAZOLE
     Indication: PRODUCT USED FOR UNKNOWN INDICATION
     Route: 065
     Dates: start: 20140902
  11. REVLIMID [Suspect]
     Active Substance: LENALIDOMIDE
     Route: 048
     Dates: start: 20140815, end: 20140824
  12. REVLIMID [Suspect]
     Active Substance: LENALIDOMIDE
     Route: 048
     Dates: start: 20140915, end: 20141005
  13. SAR650984 [Suspect]
     Active Substance: INVESTIGATIONAL PRODUCT
     Dosage: 87.5 - 99.17 MG
     Route: 065
     Dates: start: 20141110, end: 20141124
  14. VALIUM [Concomitant]
     Active Substance: DIAZEPAM
     Indication: PRODUCT USED FOR UNKNOWN INDICATION
     Route: 065
     Dates: start: 20131014
  15. VIAGRA [Concomitant]
     Active Substance: SILDENAFIL CITRATE
     Indication: PRODUCT USED FOR UNKNOWN INDICATION
     Route: 065
     Dates: start: 20100326
  16. LOPERAMIDE [Concomitant]
     Active Substance: LOPERAMIDE
     Indication: PRODUCT USED FOR UNKNOWN INDICATION
     Route: 065
     Dates: start: 20130412
  17. PEPCID [Concomitant]
     Active Substance: FAMOTIDINE
     Indication: PROPHYLAXIS
     Route: 065
     Dates: start: 20131028, end: 20140818
  18. REVLIMID [Suspect]
     Active Substance: LENALIDOMIDE
     Route: 048
     Dates: start: 20140609, end: 20140629
  19. REVLIMID [Suspect]
     Active Substance: LENALIDOMIDE
     Route: 048
     Dates: start: 20150202, end: 20150222
  20. REVLIMID [Suspect]
     Active Substance: LENALIDOMIDE
     Route: 048
     Dates: start: 20150330, end: 20150419
  21. SAR650984 [Suspect]
     Active Substance: INVESTIGATIONAL PRODUCT
     Dosage: 87.5 - 99.17 MG
     Route: 065
     Dates: start: 20140804, end: 20140818
  22. SAR650984 [Suspect]
     Active Substance: INVESTIGATIONAL PRODUCT
     Dosage: 93.3 - 87.5 MG
     Route: 065
     Dates: start: 20140915, end: 20140929
  23. SAR650984 [Suspect]
     Active Substance: INVESTIGATIONAL PRODUCT
     Dosage: 93.3 - 84.58 MG
     Route: 065
     Dates: start: 20141208, end: 20141222
  24. SAR650984 [Suspect]
     Active Substance: INVESTIGATIONAL PRODUCT
     Dosage: 78.75 - 64.17 MG
     Route: 065
     Dates: start: 20150105, end: 20150120
  25. SAR650984 [Suspect]
     Active Substance: INVESTIGATIONAL PRODUCT
     Route: 041
     Dates: start: 20150526, end: 20150526
  26. PEPCID [Concomitant]
     Active Substance: FAMOTIDINE
     Route: 065
     Dates: start: 20140915, end: 2014
  27. BENADRYL [Concomitant]
     Active Substance: DIPHENHYDRAMINE HYDROCHLORIDE
     Route: 065
     Dates: start: 20141013, end: 20150302
  28. REVLIMID [Suspect]
     Active Substance: LENALIDOMIDE
     Route: 048
     Dates: start: 20131125, end: 20131208
  29. REVLIMID [Suspect]
     Active Substance: LENALIDOMIDE
     Route: 048
     Dates: start: 20140512, end: 20140601
  30. REVLIMID [Suspect]
     Active Substance: LENALIDOMIDE
     Route: 048
     Dates: start: 20141208, end: 20141228
  31. SAR650984 [Suspect]
     Active Substance: INVESTIGATIONAL PRODUCT
     Dosage: 87.5 - 105 MG
     Route: 065
     Dates: start: 20150302, end: 20150316
  32. SAR650984 [Suspect]
     Active Substance: INVESTIGATIONAL PRODUCT
     Dosage: 99.17 - 93.33 MG
     Route: 065
     Dates: start: 20150330, end: 20150413
  33. ZOLPIDEM [Concomitant]
     Active Substance: ZOLPIDEM\ZOLPIDEM TARTRATE
     Indication: PRODUCT USED FOR UNKNOWN INDICATION
     Route: 065
     Dates: start: 20121116
  34. OXYCODONE ACETAMINOPHEN [Concomitant]
     Active Substance: ACETAMINOPHEN\OXYCODONE HYDROCHLORIDE
     Indication: PRODUCT USED FOR UNKNOWN INDICATION
     Route: 065
     Dates: start: 20140217, end: 20140527
  35. REVLIMID [Suspect]
     Active Substance: LENALIDOMIDE
     Route: 048
     Dates: start: 20131112, end: 20131118
  36. REVLIMID [Suspect]
     Active Substance: LENALIDOMIDE
     Route: 048
     Dates: start: 20131209, end: 20131215
  37. REVLIMID [Suspect]
     Active Substance: LENALIDOMIDE
     Route: 048
     Dates: start: 20140106, end: 20140112
  38. SAR650984 [Suspect]
     Active Substance: INVESTIGATIONAL PRODUCT
     Dosage: 99.17 - 90.42 MG
     Route: 065
     Dates: start: 20141013, end: 20141027
  39. LISINOPRIL. [Concomitant]
     Active Substance: LISINOPRIL
     Route: 065
     Dates: start: 20140609
  40. TYLENOL [Concomitant]
     Active Substance: ACETAMINOPHEN
     Route: 065
     Dates: start: 20141013, end: 20150302
  41. PROCHLORPERAZINE. [Concomitant]
     Active Substance: PROCHLORPERAZINE
     Indication: PRODUCT USED FOR UNKNOWN INDICATION
     Route: 065
     Dates: start: 20140527
  42. REVLIMID [Suspect]
     Active Substance: LENALIDOMIDE
     Route: 048
     Dates: start: 20140121, end: 20140210
  43. REVLIMID [Suspect]
     Active Substance: LENALIDOMIDE
     Route: 048
     Dates: start: 20141110, end: 20141130
  44. SAR650984 [Suspect]
     Active Substance: INVESTIGATIONAL PRODUCT
     Route: 065
     Dates: start: 20150427, end: 20150427
  45. DEXAMETHASONE. [Suspect]
     Active Substance: DEXAMETHASONE
     Indication: PROPHYLAXIS
     Route: 048
     Dates: start: 20140317, end: 20140428
  46. ASPIRIN. [Concomitant]
     Active Substance: ASPIRIN
     Indication: PROPHYLAXIS
     Route: 065
     Dates: start: 20130412
  47. ACYCLOVIR. [Concomitant]
     Active Substance: ACYCLOVIR
     Indication: PROPHYLAXIS
     Route: 065
     Dates: start: 20130814
  48. BENADRYL [Concomitant]
     Active Substance: DIPHENHYDRAMINE HYDROCHLORIDE
     Indication: PROPHYLAXIS
     Route: 065
     Dates: start: 20131028
  49. TYLENOL [Concomitant]
     Active Substance: ACETAMINOPHEN
     Indication: PROPHYLAXIS
     Route: 065
     Dates: start: 20131028
  50. SAR650984 [Suspect]
     Active Substance: INVESTIGATIONAL PRODUCT
     Route: 065
     Dates: start: 20150202, end: 20150216
  51. LISINOPRIL. [Concomitant]
     Active Substance: LISINOPRIL
     Indication: PROPHYLAXIS
     Route: 065
     Dates: start: 20131014, end: 20140609
  52. BENADRYL [Concomitant]
     Active Substance: DIPHENHYDRAMINE HYDROCHLORIDE
     Route: 065
     Dates: start: 20140915, end: 2014
  53. REVLIMID [Suspect]
     Active Substance: LENALIDOMIDE
     Indication: PLASMA CELL MYELOMA
     Route: 048
     Dates: start: 20131028, end: 20131111
  54. REVLIMID [Suspect]
     Active Substance: LENALIDOMIDE
     Route: 048
     Dates: start: 20131223, end: 20140105
  55. REVLIMID [Suspect]
     Active Substance: LENALIDOMIDE
     Route: 048
     Dates: start: 20140217, end: 20140309
  56. REVLIMID [Suspect]
     Active Substance: LENALIDOMIDE
     Route: 048
     Dates: start: 20140414, end: 20140504
  57. REVLIMID [Suspect]
     Active Substance: LENALIDOMIDE
     Route: 048
     Dates: start: 20140707, end: 20140727
  58. REVLIMID [Suspect]
     Active Substance: LENALIDOMIDE
     Route: 048
     Dates: start: 20141013, end: 20141102
  59. REVLIMID [Suspect]
     Active Substance: LENALIDOMIDE
     Route: 048
     Dates: start: 20150105, end: 20150125
  60. REVLIMID [Suspect]
     Active Substance: LENALIDOMIDE
     Route: 048
     Dates: start: 20150302, end: 20150322
  61. SAR650984 [Suspect]
     Active Substance: INVESTIGATIONAL PRODUCT
     Indication: PLASMA CELL MYELOMA
     Dosage: 96.25 - 93.3 MG
     Route: 065
     Dates: start: 20150427
  62. LOPERAMIDE [Concomitant]
     Active Substance: LOPERAMIDE
     Route: 065
     Dates: start: 20140217, end: 20140527
  63. AMOXICILLIN. [Concomitant]
     Active Substance: AMOXICILLIN
     Indication: PRODUCT USED FOR UNKNOWN INDICATION
     Route: 065
     Dates: start: 20140902, end: 20140929
  64. ALKA-SELTZER PLUS NOS [Concomitant]
     Active Substance: ACETAMINOPHEN\ASPIRIN\CHLORPHENIRAMINE MALEATE\DEXTROMETHORPHAN HYDROBROMIDE\DIPHENHYDRAMINE HYDROCHLORIDE\DOXYLAMINE SUCCINATE\PHENYLEPHRINE BITARTRATE\PHENYLEPHRINE HYDROCHLORIDE
     Indication: PRODUCT USED FOR UNKNOWN INDICATION
     Route: 065
     Dates: start: 20141231, end: 20150202

REACTIONS (2)
  - Procedural haemorrhage [Fatal]
  - Lung infection [Not Recovered/Not Resolved]

NARRATIVE: CASE EVENT DATE: 20150602
